FAERS Safety Report 12528245 (Version 1)
Quarter: 2016Q3

REPORT INFORMATION
  Report Type: Spontaneous
  Country: US (occurrence: US)
  Receive Date: 20160705
  Receipt Date: 20160705
  Transmission Date: 20161109
  Serious: No
  Sender: FDA-Public Use
  Company Number: US-BAYER-2016-131679

PATIENT
  Age: 50 Year
  Sex: Female

DRUGS (2)
  1. GADAVIST [Suspect]
     Active Substance: GADOBUTROL
     Indication: VISUAL IMPAIRMENT
     Dosage: UNK UNK, ONCE
     Route: 042
     Dates: start: 20160701, end: 20160701
  2. GADAVIST [Suspect]
     Active Substance: GADOBUTROL
     Indication: LACRIMATION INCREASED

REACTIONS (2)
  - Urticaria [None]
  - Pruritus [None]

NARRATIVE: CASE EVENT DATE: 20160701
